FAERS Safety Report 9027351 (Version 1)
Quarter: 2013Q1

REPORT INFORMATION
  Report Type: Spontaneous
  Country: US (occurrence: US)
  Receive Date: 20130124
  Receipt Date: 20130124
  Transmission Date: 20140127
  Serious: No
  Sender: FDA-Public Use
  Company Number: US-009507513-1301USA009920

PATIENT
  Sex: Female

DRUGS (3)
  1. RIBAVIRIN [Suspect]
     Indication: HEPATITIS C
     Dosage: UNK, UNKNOWN
  2. VICTRELIS [Suspect]
     Indication: HEPATITIS C
     Dosage: UNK, UNKNOWN
  3. PEGASYS [Suspect]
     Indication: HEPATITIS C

REACTIONS (3)
  - Headache [Unknown]
  - Cough [Unknown]
  - Influenza like illness [Unknown]
